FAERS Safety Report 5944173-8 (Version None)
Quarter: 2008Q4

REPORT INFORMATION
  Report Type: 
  Country: None (occurrence: None)
  Receive Date: 20081104
  Receipt Date: 20081022
  Transmission Date: 20090506
  Serious: No
  Sender: FDA-Public Use
  Company Number: US024920

PATIENT
  Sex: Female

DRUGS (3)
  1. FENTORA [Suspect]
     Indication: BACK PAIN
     Dosage: 600 UG QID PRN BUCCAL
     Route: 002
  2. DURAGESIC-100 [Concomitant]
  3. KADIAN [Concomitant]

REACTIONS (1)
  - DRUG PRESCRIBING ERROR [None]
